FAERS Safety Report 15154260 (Version 1)
Quarter: 2018Q3

REPORT INFORMATION
  Report Type: Spontaneous
  Country: US (occurrence: US)
  Receive Date: 20180620
  Receipt Date: 20180620
  Transmission Date: 20181010
  Serious: Yes (Disabling, Other)
  Sender: FDA-Public Use
  Company Number: None

PATIENT
  Age: 23 Year
  Sex: Male
  Weight: 67.5 kg

DRUGS (1)
  1. CEPHALEXIN 500 MG CAPSULE TAKE 1 CAPSULE 4X A DAY X 5 DAYS [Suspect]
     Active Substance: CEPHALEXIN
     Indication: STAPHYLOCOCCAL INFECTION
     Dosage: ?          QUANTITY:40 CAPSULE(S);?
     Route: 048
     Dates: start: 20180613, end: 20180619

REACTIONS (10)
  - Rash [None]
  - Staphylococcal skin infection [None]
  - Nervous system disorder [None]
  - Disorientation [None]
  - Skin irritation [None]
  - Disturbance in attention [None]
  - Hypoacusis [None]
  - Memory impairment [None]
  - Tinnitus [None]
  - Seizure like phenomena [None]

NARRATIVE: CASE EVENT DATE: 20180619
